FAERS Safety Report 5800896-2 (Version None)
Quarter: 2008Q3

REPORT INFORMATION
  Report Type: 
  Country: None (occurrence: None)
  Receive Date: 20080701
  Receipt Date: 20080618
  Transmission Date: 20090109
  Serious: Yes (Hospitalization)
  Sender: FDA-Public Use
  Company Number: TCI2008A02832

PATIENT
  Age: 58 Year
  Sex: Male

DRUGS (6)
  1. ACTOS [Suspect]
     Indication: DIABETES MELLITUS
     Dosage: 30 MG (30 MG, 1 IN 1 D) PER ORAL
     Route: 048
     Dates: end: 20080502
  2. RABEPRAZOLE SODIUM [Suspect]
     Dosage: 20 MG (10 MG, 2 IN 1 D) PER ORAL
     Route: 048
     Dates: start: 20080124, end: 20080430
  3. DEPAKENE [Suspect]
     Dosage: 600 MG (600 MG, 1 IN 1 D) PER ORAL
     Route: 048
  4. AMLODIN OD (AMLODIPINE BESILATE) [Concomitant]
  5. MUCOSTA (REBAMIPIDE) [Concomitant]
  6. DIOVAN [Concomitant]

REACTIONS (2)
  - LYMPHOCYTE STIMULATION TEST POSITIVE [None]
  - THROMBOCYTOPENIA [None]
